FAERS Safety Report 8397219-4 (Version None)
Quarter: 2012Q2

REPORT INFORMATION
  Report Type: 
  Country: None (occurrence: None)
  Receive Date: 20120530
  Receipt Date: 20120427
  Transmission Date: 20120825
  Serious: Yes (Other)
  Sender: FDA-Public Use
  Company Number: DE-PFIZER INC-2012043404

PATIENT
  Sex: Female
  Weight: 3.37 kg

DRUGS (3)
  1. SERTRALINE HYDROCHLORIDE [Suspect]
     Dosage: 100MG/D
     Route: 064
     Dates: end: 20110812
  2. FOLIC ACID [Concomitant]
     Dosage: 0.4 MG, 1X/DAY
     Route: 064
  3. SERTRALINE HYDROCHLORIDE [Suspect]
     Indication: DEPRESSION
     Dosage: 50MG-100MG
     Route: 064
     Dates: start: 20101120

REACTIONS (2)
  - MYOCLONUS [None]
  - MATERNAL EXPOSURE TIMING UNSPECIFIED [None]
